FAERS Safety Report 23420191 (Version 1)
Quarter: 2024Q1

REPORT INFORMATION
  Report Type: Spontaneous
  Country: US (occurrence: US)
  Receive Date: 20240119
  Receipt Date: 20240119
  Transmission Date: 20240410
  Serious: Yes (Other)
  Sender: FDA-Public Use
  Company Number: US-BEH-2024167298

PATIENT
  Age: 53 Year
  Sex: Male

DRUGS (2)
  1. HIZENTRA [Suspect]
     Active Substance: HUMAN IMMUNOGLOBULIN G
     Indication: Chronic inflammatory demyelinating polyradiculoneuropathy
     Dosage: 115 MILLILITER, BIW
     Route: 058
     Dates: start: 202105
  2. UNSPECIFIED INGREDIENT [Suspect]
     Active Substance: UNSPECIFIED INGREDIENT
     Indication: Product used for unknown indication
     Dosage: UNK
     Route: 065
     Dates: start: 20231211

REACTIONS (6)
  - Guillain-Barre syndrome [Recovering/Resolving]
  - Movement disorder [Recovering/Resolving]
  - Asthenia [Recovering/Resolving]
  - Somnolence [Recovering/Resolving]
  - Inflammation [Recovering/Resolving]
  - Pelvic pain [Recovering/Resolving]

NARRATIVE: CASE EVENT DATE: 20231211
